FAERS Safety Report 17100444 (Version 1)
Quarter: 2019Q4

REPORT INFORMATION
  Report Type: Spontaneous
  Country: US (occurrence: US)
  Receive Date: 20191202
  Receipt Date: 20191202
  Transmission Date: 20200122
  Serious: No
  Sender: FDA-Public Use
  Company Number: US-AMGEN-USASP2019199161

PATIENT
  Age: 82 Year
  Sex: Female

DRUGS (15)
  1. HYDROCODONE [Concomitant]
     Active Substance: HYDROCODONE
     Dosage: 5 - 325 MILLIGRAM, TABLET
  2. LEVOTHYROXIN [Concomitant]
     Active Substance: LEVOTHYROXINE
     Dosage: 125 MICROGRAM, TABLET
  3. METOPROLOL. [Concomitant]
     Active Substance: METOPROLOL
     Dosage: 25 MILLIGRAM, S TB2
  4. ROPINIROLE. [Concomitant]
     Active Substance: ROPINIROLE
     Dosage: 5 MILLIGRAM, H TAB
  5. SIMVASTATIN. [Concomitant]
     Active Substance: SIMVASTATIN
     Dosage: 20 MILLIGRAM, TABLET
  6. PANTOPRAZOLE [Concomitant]
     Active Substance: PANTOPRAZOLE
     Dosage: 40 MILLIGRAM, TBE
  7. ALLOPURINOL. [Concomitant]
     Active Substance: ALLOPURINOL
     Dosage: 100 MILLIGRAM, TABLET
  8. MECLIZINE HCL [Concomitant]
     Active Substance: MECLIZINE HYDROCHLORIDE
     Dosage: 25 MILLIGRAM, TABLET
  9. ALENDRONATE [Concomitant]
     Active Substance: ALENDRONATE SODIUM
     Dosage: 70 MILLIGRAM, TABLET
  10. FUROSEMIDE. [Concomitant]
     Active Substance: FUROSEMIDE
     Dosage: 20 MILLIGRAM, TABLET
  11. GABAPENTIN. [Concomitant]
     Active Substance: GABAPENTIN
  12. TRAMADOL HCL [Concomitant]
     Active Substance: TRAMADOL HYDROCHLORIDE
     Dosage: 50 MILLIGRAM, TABLET
  13. REPATHA [Suspect]
     Active Substance: EVOLOCUMAB
     Indication: COLON CANCER
     Dosage: UNK
     Route: 065
  14. LISINOPRIL. [Concomitant]
     Active Substance: LISINOPRIL
     Dosage: 10 MILLIGRAM, TABLET
  15. POTASSIUM [Concomitant]
     Active Substance: POTASSIUM
     Dosage: 20 MEQ

REACTIONS (2)
  - Product dose omission [Unknown]
  - Off label use [Unknown]

NARRATIVE: CASE EVENT DATE: 20191122
